FAERS Safety Report 11755623 (Version 1)
Quarter: 2015Q4

REPORT INFORMATION
  Report Type: Report from Study
  Country: AU (occurrence: AU)
  Receive Date: 20151119
  Receipt Date: 20151119
  Transmission Date: 20160304
  Serious: Yes (Other)
  Sender: FDA-Public Use
  Company Number: AU-TEVA-601384ISR

PATIENT
  Age: 57 Year
  Sex: Female

DRUGS (2)
  1. COPAXONE [Suspect]
     Active Substance: GLATIRAMER ACETATE
     Indication: MULTIPLE SCLEROSIS
     Route: 058
     Dates: start: 20151003, end: 20151014
  2. COPAXONE [Suspect]
     Active Substance: GLATIRAMER ACETATE
     Route: 058
     Dates: start: 20151028

REACTIONS (8)
  - Pyrexia [Recovered/Resolved]
  - Headache [Recovering/Resolving]
  - Musculoskeletal stiffness [Recovered/Resolved]
  - Neutropenia [Not Recovered/Not Resolved]
  - Tension headache [Unknown]
  - Chills [Recovered/Resolved]
  - Influenza like illness [Recovered/Resolved]
  - Muscle spasms [Not Recovered/Not Resolved]

NARRATIVE: CASE EVENT DATE: 20151009
